FAERS Safety Report 8139898-2 (Version None)
Quarter: 2012Q1

REPORT INFORMATION
  Report Type: 
  Country: None (occurrence: None)
  Receive Date: 20120215
  Receipt Date: 20120209
  Transmission Date: 20120608
  Serious: Yes (Hospitalization)
  Sender: FDA-Public Use
  Company Number: US-VERTEX PHARMACEUTICALS INC.-AE-2012-001558

PATIENT
  Sex: Male
  Weight: 105.33 kg

DRUGS (5)
  1. BUSPAR [Concomitant]
     Indication: ANXIETY
  2. RIBASPHERE [Concomitant]
     Indication: HEPATITIS C
     Route: 048
     Dates: start: 20111101
  3. INCIVEK [Suspect]
     Indication: HEPATITIS C
     Route: 048
     Dates: start: 20111101, end: 20120119
  4. TRAZODONE HCL [Concomitant]
     Indication: ANXIETY
  5. PEGASYS [Concomitant]
     Indication: HEPATITIS C
     Route: 058
     Dates: start: 20111101

REACTIONS (2)
  - THROMBOSIS [None]
  - PULMONARY EMBOLISM [None]
